FAERS Safety Report 6333085-6 (Version None)
Quarter: 2009Q3

REPORT INFORMATION
  Report Type: 
  Country: None (occurrence: None)
  Receive Date: 20090828
  Receipt Date: 20090818
  Transmission Date: 20100115
  Serious: Yes (Other)
  Sender: FDA-Public Use
  Company Number: GB-PFIZER INC-2009256005

PATIENT
  Age: 29 Year

DRUGS (2)
  1. CHAMPIX [Suspect]
     Dosage: 1 MG, UNK
     Route: 048
     Dates: start: 20090519, end: 20090602
  2. TETRASOL [Concomitant]

REACTIONS (2)
  - ANGER [None]
  - MOOD ALTERED [None]
